FAERS Safety Report 16043248 (Version 2)
Quarter: 2019Q3

REPORT INFORMATION
  Report Type: Spontaneous
  Country: GR (occurrence: GR)
  Receive Date: 20190306
  Receipt Date: 20190821
  Transmission Date: 20191004
  Serious: Yes (Death, Hospitalization, Other)
  Sender: FDA-Public Use
  Company Number: GR-MYLANLABS-2019M1020793

PATIENT
  Age: 81 Year
  Sex: Female

DRUGS (4)
  1. METFORMIN [Suspect]
     Active Substance: METFORMIN HYDROCHLORIDE
     Indication: DIABETES MELLITUS
  2. ATORVASTATIN [Concomitant]
     Active Substance: ATORVASTATIN
     Indication: ISCHAEMIC STROKE
  3. SALICYLIC ACID. [Concomitant]
     Active Substance: SALICYLIC ACID
     Indication: ISCHAEMIC STROKE
  4. IRBESARTAN HYDROCHLOROTHIAZIDE [Concomitant]
     Active Substance: HYDROCHLOROTHIAZIDE\IRBESARTAN
     Indication: HYPERTENSION

REACTIONS (11)
  - Gastrointestinal oedema [Unknown]
  - Lactic acidosis [Not Recovered/Not Resolved]
  - Acute abdomen [Unknown]
  - Cardiac arrest [Fatal]
  - Acute kidney injury [Unknown]
  - Vomiting [Unknown]
  - Myocardial infarction [Fatal]
  - Renal impairment [Not Recovered/Not Resolved]
  - Metabolic acidosis [Unknown]
  - Dehydration [Not Recovered/Not Resolved]
  - Abdominal pain [Unknown]
